FAERS Safety Report 5884682-3 (Version None)
Quarter: 2008Q3

REPORT INFORMATION
  Report Type: 
  Country: None (occurrence: None)
  Receive Date: 20080911
  Receipt Date: 20080804
  Transmission Date: 20090109
  Serious: Yes (Hospitalization, Other)
  Sender: FDA-Public Use
  Company Number: IPS_01207_2008

PATIENT
  Sex: Female

DRUGS (4)
  1. APO-GO (APO-GO AMPOULES - APOMORPHINE HYDROCHLORIDE) (NOT SPECIFIED) [Suspect]
     Indication: PARKINSON'S DISEASE
     Dosage: (6 MG PER HOUR FOR 2 YEARS 1 MONTH SUBCUTANEOUS)
     Route: 058
     Dates: start: 20060601, end: 20080701
  2. SINEMET CR [Concomitant]
  3. ELDEPRYL [Concomitant]
  4. SINEMET [Concomitant]

REACTIONS (3)
  - INFUSION SITE ABSCESS [None]
  - INFUSION SITE NECROSIS [None]
  - RENAL DISORDER [None]
